APPROVED DRUG PRODUCT: JUVISYNC
Active Ingredient: SIMVASTATIN; SITAGLIPTIN PHOSPHATE
Strength: 20MG;EQ 100MG BASE **Federal Register determination that product was not discontinued or withdrawn for safety or effectiveness reasons**
Dosage Form/Route: TABLET;ORAL
Application: N202343 | Product #002
Applicant: MERCK SHARP AND DOHME CORP
Approved: Oct 7, 2011 | RLD: Yes | RS: No | Type: DISCN

PATENTS:
Patent 7326708*PED | Expires: Oct 11, 2026
Patent 7326708 | Expires: Apr 11, 2026